FAERS Safety Report 15723565 (Version 1)
Quarter: 2018Q4

REPORT INFORMATION
  Report Type: Spontaneous
  Country: DE (occurrence: DE)
  Receive Date: 20181214
  Receipt Date: 20181214
  Transmission Date: 20190205
  Serious: Yes (Death)
  Sender: FDA-Public Use
  Company Number: DE-PFIZER INC-2018503007

PATIENT
  Age: 100 Year
  Sex: Female
  Weight: 55 kg

DRUGS (5)
  1. ALDACTONE [Suspect]
     Active Substance: SPIRONOLACTONE
     Indication: CARDIAC FAILURE
     Dosage: SHORTTIME DOSE INCREASE TO 50 MG
     Route: 048
     Dates: start: 201805, end: 201806
  2. BISOPROLOL [Concomitant]
     Active Substance: BISOPROLOL
     Indication: CARDIAC FAILURE
  3. POTASSIUM [Concomitant]
     Active Substance: POTASSIUM
     Dosage: UNK
  4. PREDNISOLON [PREDNISOLONE] [Concomitant]
     Active Substance: PREDNISOLONE
     Dosage: UNK
  5. TORASEMID [Suspect]
     Active Substance: TORSEMIDE
     Indication: CARDIAC FAILURE
     Route: 048
     Dates: start: 201805, end: 201806

REACTIONS (7)
  - Dehydration [Recovered/Resolved]
  - Pneumonitis [Fatal]
  - Muscular weakness [Recovered/Resolved]
  - Apathy [Recovered/Resolved]
  - Bronchitis [Fatal]
  - Decreased appetite [Recovered/Resolved]
  - Hypersomnia [Recovered/Resolved]

NARRATIVE: CASE EVENT DATE: 201806
